FAERS Safety Report 6739898-0 (Version None)
Quarter: 2010Q2

REPORT INFORMATION
  Report Type: 
  Country: None (occurrence: None)
  Receive Date: 20100525
  Receipt Date: 20100513
  Transmission Date: 20101027
  Serious: Yes (Death, Other)
  Sender: FDA-Public Use
  Company Number: US-PFIZER INC-2010055718

PATIENT
  Sex: Male
  Weight: 135.6 kg

DRUGS (8)
  1. SUTENT [Suspect]
     Indication: HEPATIC NEOPLASM MALIGNANT
     Dosage: 12.5 MG, 3X/DAY
     Route: 048
     Dates: start: 20091203, end: 20100222
  2. HYDROCODONE [Concomitant]
     Indication: PAIN
     Dosage: UNK
  3. ALDACTONE [Concomitant]
     Indication: DIURETIC THERAPY
     Dosage: UNK
  4. BUMEX [Concomitant]
     Indication: DIURETIC THERAPY
     Dosage: UNK
  5. INDERAL [Concomitant]
     Indication: ILL-DEFINED DISORDER
     Dosage: UNK
  6. LACTULOSE [Concomitant]
     Indication: AMMONIA INCREASED
     Dosage: UNK
  7. PROMETHAZINE HYDROCHLORIDE [Concomitant]
     Indication: NAUSEA
     Dosage: UNK
  8. REGLAN [Concomitant]
     Indication: NAUSEA
     Dosage: UNK

REACTIONS (3)
  - ALANINE AMINOTRANSFERASE INCREASED [None]
  - DISEASE PROGRESSION [None]
  - HEPATIC NEOPLASM MALIGNANT [None]
